FAERS Safety Report 4396767-1 (Version None)
Quarter: 2004Q3

REPORT INFORMATION
  Report Type: 
  Country: None (occurrence: None)
  Receive Date: 20040714
  Receipt Date: 20040227
  Transmission Date: 20050211
  Serious: Yes (Hospitalization)
  Sender: FDA-Public Use
  Company Number: 200412838GDDC

PATIENT
  Age: 67 Year
  Sex: Female
  Weight: 61.6 kg

DRUGS (12)
  1. AMARYL [Suspect]
     Indication: DIABETES MELLITUS NON-INSULIN-DEPENDENT
     Dosage: DOSE: 021720043
     Route: 048
     Dates: start: 20040217, end: 20040225
  2. METFORMIN HCL [Suspect]
     Indication: DIABETES MELLITUS NON-INSULIN-DEPENDENT
     Route: 048
     Dates: start: 20040217, end: 20040225
  3. NICORANDIL [Concomitant]
     Indication: CORONARY ARTERY DISEASE
     Route: 048
     Dates: start: 20040205
  4. CARVEDILOL [Concomitant]
     Indication: HYPERTENSION
     Route: 048
     Dates: start: 20040205
  5. RAMIPRIL [Concomitant]
     Indication: HYPERTENSION
     Route: 048
     Dates: start: 20040205
  6. ASPIRIN [Concomitant]
     Indication: CORONARY ARTERY DISEASE
     Route: 048
     Dates: start: 20040205
  7. MOSAPRIDE CITRATE [Concomitant]
     Indication: DYSPEPSIA
     Route: 048
     Dates: start: 20040205
  8. THIOCTIC ACID [Concomitant]
     Indication: DIABETES MELLITUS
     Route: 048
     Dates: start: 20040205
  9. MECOBALAMIN [Concomitant]
     Indication: DIABETES MELLITUS
     Route: 048
     Dates: start: 20040205
  10. TANAKAN [Concomitant]
     Indication: DIABETES MELLITUS
     Route: 048
     Dates: start: 20040205
  11. AMITRIPTYLINE HCL [Concomitant]
     Indication: DEPRESSION
     Route: 048
     Dates: start: 20040205
  12. GLICLAZIDE [Concomitant]
     Route: 048
     Dates: start: 20040205

REACTIONS (10)
  - BLOOD POTASSIUM INCREASED [None]
  - BLOOD SODIUM DECREASED [None]
  - HAEMATOCRIT DECREASED [None]
  - HAEMOGLOBIN DECREASED [None]
  - HEARING IMPAIRED [None]
  - HIGH DENSITY LIPOPROTEIN DECREASED [None]
  - HYPERTENSION [None]
  - RED BLOOD CELL COUNT DECREASED [None]
  - SUDDEN HEARING LOSS [None]
  - WHITE BLOOD CELL COUNT DECREASED [None]
